FAERS Safety Report 18202068 (Version 1)
Quarter: 2020Q3

REPORT INFORMATION
  Report Type: Report from Study
  Country: FR (occurrence: FR)
  Receive Date: 20200827
  Receipt Date: 20200827
  Transmission Date: 20201103
  Serious: No
  Sender: FDA-Public Use
  Company Number: FR-JNJFOC-20200838977

PATIENT
  Age: 23 Year
  Sex: Female

DRUGS (1)
  1. STELARA [Suspect]
     Active Substance: USTEKINUMAB
     Indication: CROHN^S DISEASE
     Dosage: 260 MG
     Route: 058
     Dates: start: 20200113, end: 20200113

REACTIONS (3)
  - Decreased appetite [Recovered/Resolved]
  - Escherichia infection [Recovered/Resolved]
  - Hepatomegaly [Not Recovered/Not Resolved]

NARRATIVE: CASE EVENT DATE: 20200206
